FAERS Safety Report 14559903 (Version 3)
Quarter: 2018Q2

REPORT INFORMATION
  Report Type: Spontaneous
  Country: US (occurrence: US)
  Receive Date: 20180221
  Receipt Date: 20180530
  Transmission Date: 20180711
  Serious: Yes (Death, Other)
  Sender: FDA-Public Use
  Company Number: US-INSYS THERAPEUTICS, INC-INS201802-000058

PATIENT
  Age: 50 Year
  Sex: Male

DRUGS (14)
  1. SUBSYS [Suspect]
     Active Substance: FENTANYL
     Dates: start: 20180102
  2. MAGNESIUM [Concomitant]
     Active Substance: MAGNESIUM
  3. SUBSYS [Suspect]
     Active Substance: FENTANYL
     Dates: start: 201708
  4. MS CONTIN [Concomitant]
     Active Substance: MORPHINE SULFATE
  5. MARINOL [Concomitant]
     Active Substance: DRONABINOL
  6. ZOLPIDEM [Suspect]
     Active Substance: ZOLPIDEM\ZOLPIDEM TARTRATE
     Indication: PRODUCT USED FOR UNKNOWN INDICATION
  7. SUBSYS [Suspect]
     Active Substance: FENTANYL
     Indication: BREAKTHROUGH PAIN
     Dates: start: 201607
  8. SUBSYS [Suspect]
     Active Substance: FENTANYL
     Dates: start: 201711
  9. ALPRAZOLAM. [Suspect]
     Active Substance: ALPRAZOLAM
  10. MORPHINE [Suspect]
     Active Substance: MORPHINE
  11. IBUPROFEN. [Concomitant]
     Active Substance: IBUPROFEN
  12. OXYCODONE [Concomitant]
     Active Substance: OXYCODONE
  13. VITAMNIN B12 [Concomitant]
  14. ZOFRAN [Concomitant]
     Active Substance: ONDANSETRON HYDROCHLORIDE

REACTIONS (3)
  - Feeling abnormal [Unknown]
  - Overdose [Fatal]
  - Unresponsive to stimuli [Unknown]

NARRATIVE: CASE EVENT DATE: 20180204
